FAERS Safety Report 16377485 (Version 1)
Quarter: 2019Q2

REPORT INFORMATION
  Report Type: Spontaneous
  Country: US (occurrence: US)
  Receive Date: 20190531
  Receipt Date: 20190531
  Transmission Date: 20190711
  Serious: No
  Sender: FDA-Public Use
  Company Number: US-PFIZER INC-2019232639

PATIENT
  Age: 19 Month
  Sex: Female

DRUGS (1)
  1. RAPAMUNE [Suspect]
     Active Substance: SIROLIMUS
     Dosage: 1.3 MG, 2X/DAY(EVERY 12 HOURS)

REACTIONS (3)
  - Off label use [Unknown]
  - Drug level increased [Unknown]
  - Product use issue [Unknown]
